APPROVED DRUG PRODUCT: VIAGRA
Active Ingredient: SILDENAFIL CITRATE
Strength: EQ 100MG BASE
Dosage Form/Route: TABLET;ORAL
Application: N020895 | Product #003 | TE Code: AB
Applicant: VIATRIS SPECIALTY LLC
Approved: Mar 27, 1998 | RLD: Yes | RS: Yes | Type: RX